FAERS Safety Report 25817312 (Version 2)
Quarter: 2025Q4

REPORT INFORMATION
  Report Type: Spontaneous
  Country: US (occurrence: US)
  Receive Date: 20250918
  Receipt Date: 20251006
  Transmission Date: 20260118
  Serious: No
  Sender: PFIZER
  Company Number: US-PFIZER INC-202500183655

PATIENT
  Age: 66 Year
  Sex: Female
  Weight: 70.295 kg

DRUGS (2)
  1. PAXLOVID [Suspect]
     Active Substance: NIRMATRELVIR\RITONAVIR
     Indication: COVID-19 treatment
     Dosage: [NIRMATRELVIR 300 MG]/[RITONAVIR 100 MG]; 2X/DAY
     Route: 048
     Dates: start: 20250903, end: 20250908
  2. AMOXICILLIN [Concomitant]
     Active Substance: AMOXICILLIN
     Indication: Dental care
     Dosage: 500 MG, 3X/DAY (EVERY 8 HOURS)
     Dates: start: 20250909

REACTIONS (2)
  - COVID-19 [Recovered/Resolved]
  - Disease recurrence [Recovered/Resolved]

NARRATIVE: CASE EVENT DATE: 20250913
